FAERS Safety Report 18176387 (Version 5)
Quarter: 2021Q3

REPORT INFORMATION
  Report Type: Report from Study
  Country: DE (occurrence: DE)
  Receive Date: 20200820
  Receipt Date: 20210819
  Transmission Date: 20211014
  Serious: Yes (Other)
  Sender: FDA-Public Use
  Company Number: DE-SHIRE-DE202026133

PATIENT
  Age: 60 Year
  Sex: Female

DRUGS (33)
  1. TEDUGLUTIDE [Suspect]
     Active Substance: TEDUGLUTIDE
     Dosage: 2.5 MILLIGRAM, 1X/DAY:QD
     Route: 065
     Dates: start: 20170316, end: 20170413
  2. TEDUGLUTIDE [Suspect]
     Active Substance: TEDUGLUTIDE
     Dosage: 2.5 MILLIGRAM, 1X/DAY:QD
     Route: 065
     Dates: start: 20170316, end: 20170413
  3. TEDUGLUTIDE [Suspect]
     Active Substance: TEDUGLUTIDE
     Dosage: 4 MILLIGRAM, 1X/DAY:QD
     Route: 065
     Dates: start: 20170414, end: 20170421
  4. TEDUGLUTIDE [Suspect]
     Active Substance: TEDUGLUTIDE
     Dosage: 3.1 MILLIGRAM, 1X/DAY:QD
     Route: 065
     Dates: start: 20170425, end: 20170427
  5. TEDUGLUTIDE [Suspect]
     Active Substance: TEDUGLUTIDE
     Dosage: 2.5 MILLIGRAM, 1X/DAY:QD
     Route: 065
     Dates: start: 20170428, end: 20170508
  6. OMEPRAZOL [OMEPRAZOLE] [Concomitant]
     Active Substance: OMEPRAZOLE
     Indication: SHORT-BOWEL SYNDROME
     Dosage: 40 MILLIGRAM, QD
     Route: 065
  7. TEDUGLUTIDE [Suspect]
     Active Substance: TEDUGLUTIDE
     Indication: SHORT-BOWEL SYNDROME
     Dosage: 5 MILLIGRAM, 1X/DAY:QD
     Route: 065
     Dates: start: 20161126, end: 20170315
  8. TEDUGLUTIDE [Suspect]
     Active Substance: TEDUGLUTIDE
     Dosage: 4 MILLIGRAM, 1X/DAY:QD
     Route: 065
     Dates: start: 20170414, end: 20170421
  9. TEDUGLUTIDE [Suspect]
     Active Substance: TEDUGLUTIDE
     Dosage: 2.5 MILLIGRAM, 1X/DAY:QD
     Route: 065
     Dates: start: 20170422, end: 20170424
  10. TEDUGLUTIDE [Suspect]
     Active Substance: TEDUGLUTIDE
     Dosage: 2.5 MILLIGRAM, 1X/DAY:QD
     Route: 065
     Dates: start: 20170428, end: 20170508
  11. USTEKINUMAB [Concomitant]
     Active Substance: USTEKINUMAB
     Indication: CROHN^S DISEASE
  12. TEDUGLUTIDE [Suspect]
     Active Substance: TEDUGLUTIDE
     Indication: SHORT-BOWEL SYNDROME
     Dosage: 5 MILLIGRAM, 1X/DAY:QD
     Route: 065
     Dates: start: 20161126, end: 20170315
  13. TEDUGLUTIDE [Suspect]
     Active Substance: TEDUGLUTIDE
     Dosage: 2.5 MILLIGRAM, 1X/DAY:QD
     Route: 065
     Dates: start: 20170422, end: 20170424
  14. TEDUGLUTIDE [Suspect]
     Active Substance: TEDUGLUTIDE
     Dosage: 3.1 MILLIGRAM, 1X/DAY:QD
     Route: 065
     Dates: start: 20170425, end: 20170427
  15. TEDUGLUTIDE [Suspect]
     Active Substance: TEDUGLUTIDE
     Indication: SHORT-BOWEL SYNDROME
     Dosage: 5 MILLIGRAM, 1X/DAY:QD
     Route: 065
     Dates: start: 20161126, end: 20170315
  16. TEDUGLUTIDE [Suspect]
     Active Substance: TEDUGLUTIDE
     Indication: SHORT-BOWEL SYNDROME
     Dosage: 5 MILLIGRAM, 1X/DAY:QD
     Route: 065
     Dates: start: 20161126, end: 20170315
  17. TEDUGLUTIDE [Suspect]
     Active Substance: TEDUGLUTIDE
     Dosage: 2.5 MILLIGRAM, 1X/DAY:QD
     Route: 065
     Dates: start: 20170316, end: 20170413
  18. TEDUGLUTIDE [Suspect]
     Active Substance: TEDUGLUTIDE
     Dosage: 2.5 MILLIGRAM, 1X/DAY:QD
     Route: 065
     Dates: start: 20170422, end: 20170424
  19. TEDUGLUTIDE [Suspect]
     Active Substance: TEDUGLUTIDE
     Dosage: 2.5 MILLIGRAM, 1X/DAY:QD
     Route: 065
     Dates: start: 20170428, end: 20170508
  20. TEDUGLUTIDE [Suspect]
     Active Substance: TEDUGLUTIDE
     Dosage: 0.31?0.5 MILLIGRAM
     Route: 065
     Dates: start: 201611, end: 201705
  21. PRAMIPEXOL [PRAMIPEXOLE] [Concomitant]
     Active Substance: PRAMIPEXOLE
     Indication: PRODUCT USED FOR UNKNOWN INDICATION
     Dosage: 0.36 MILLIGRAM, BID
     Route: 065
  22. TEDUGLUTIDE [Suspect]
     Active Substance: TEDUGLUTIDE
     Dosage: 2.5 MILLIGRAM, 1X/DAY:QD
     Route: 065
     Dates: start: 20170316, end: 20170413
  23. TEDUGLUTIDE [Suspect]
     Active Substance: TEDUGLUTIDE
     Dosage: 4 MILLIGRAM, 1X/DAY:QD
     Route: 065
     Dates: start: 20170414, end: 20170421
  24. TEDUGLUTIDE [Suspect]
     Active Substance: TEDUGLUTIDE
     Dosage: 4 MILLIGRAM, 1X/DAY:QD
     Route: 065
     Dates: start: 20170414, end: 20170421
  25. IMODIUM [Concomitant]
     Active Substance: LOPERAMIDE HYDROCHLORIDE
     Indication: SHORT-BOWEL SYNDROME
     Dosage: 2 MILLIGRAM, QID
     Route: 065
  26. TEDUGLUTIDE [Suspect]
     Active Substance: TEDUGLUTIDE
     Dosage: 3.1 MILLIGRAM, 1X/DAY:QD
     Route: 065
     Dates: start: 20170425, end: 20170427
  27. TEDUGLUTIDE [Suspect]
     Active Substance: TEDUGLUTIDE
     Dosage: 2.5 MILLIGRAM, 1X/DAY:QD
     Route: 065
     Dates: start: 20170428, end: 20170508
  28. TEDUGLUTIDE [Suspect]
     Active Substance: TEDUGLUTIDE
     Dosage: 0.31?0.5 MILLIGRAM
     Route: 065
     Dates: start: 201611, end: 201705
  29. TEDUGLUTIDE [Suspect]
     Active Substance: TEDUGLUTIDE
     Dosage: 0.31?0.5 MILLIGRAM
     Route: 065
     Dates: start: 201611, end: 201705
  30. AZATHIOPRIN [Concomitant]
     Active Substance: AZATHIOPRINE
     Indication: CROHN^S DISEASE
     Dosage: 75 MILLIGRAM, QD
     Route: 065
  31. TEDUGLUTIDE [Suspect]
     Active Substance: TEDUGLUTIDE
     Dosage: 2.5 MILLIGRAM, 1X/DAY:QD
     Route: 065
     Dates: start: 20170422, end: 20170424
  32. TEDUGLUTIDE [Suspect]
     Active Substance: TEDUGLUTIDE
     Dosage: 3.1 MILLIGRAM, 1X/DAY:QD
     Route: 065
     Dates: start: 20170425, end: 20170427
  33. TEDUGLUTIDE [Suspect]
     Active Substance: TEDUGLUTIDE
     Dosage: 0.31?0.5 MILLIGRAM
     Route: 065
     Dates: start: 201611, end: 201705

REACTIONS (2)
  - Squamous cell carcinoma [Recovered/Resolved]
  - Bone abscess [Not Recovered/Not Resolved]

NARRATIVE: CASE EVENT DATE: 201806
